FAERS Safety Report 8866189 (Version 2)
Quarter: 2012Q4

REPORT INFORMATION
  Report Type: 
  Country: MX (occurrence: MX)
  Receive Date: 20121025
  Receipt Date: 20121226
  Transmission Date: 20130627
  Serious: Yes (Hospitalization)
  Sender: FDA-Public Use
  Company Number: PHHY2012MX095684

PATIENT
  Age: 58 Year
  Sex: Female

DRUGS (5)
  1. EXFORGE [Suspect]
     Indication: HYPERTENSION
     Dosage: 1 DF (320/10 mg), Daily
     Route: 048
  2. EXFORGE [Suspect]
     Dosage: 1 DF (160/10 mg), Daily
     Route: 048
     Dates: start: 20120903
  3. EXFORGE [Suspect]
     Dosage: 1 DF (160/5mg), Daily
     Route: 048
     Dates: start: 201210
  4. HALCION [Concomitant]
     Dosage: 2 DF, Per day
  5. DOCUSATE SODIUM [Concomitant]
     Dosage: 2 DF, Per day

REACTIONS (8)
  - Renal disorder [Not Recovered/Not Resolved]
  - Colitis [Not Recovered/Not Resolved]
  - Pain [Not Recovered/Not Resolved]
  - Pruritus generalised [Not Recovered/Not Resolved]
  - Epigastric discomfort [Not Recovered/Not Resolved]
  - Malaise [Not Recovered/Not Resolved]
  - Poor quality sleep [Not Recovered/Not Resolved]
  - Alopecia [Not Recovered/Not Resolved]
